FAERS Safety Report 25557297 (Version 1)
Quarter: 2025Q3

REPORT INFORMATION
  Report Type: Report from Study
  Country: MX (occurrence: MX)
  Receive Date: 20250715
  Receipt Date: 20250715
  Transmission Date: 20251020
  Serious: Yes (Hospitalization, Other)
  Sender: NOVARTIS
  Company Number: MX-002147023-NVSC2025MX111889

PATIENT
  Age: 40 Year
  Sex: Female

DRUGS (1)
  1. GILENYA [Suspect]
     Active Substance: FINGOLIMOD HYDROCHLORIDE
     Indication: Multiple sclerosis
     Dosage: 0.5 MG, QD
     Route: 048
     Dates: start: 20100723

REACTIONS (7)
  - Multiple sclerosis relapse [Recovered/Resolved]
  - Hemiparaesthesia [Unknown]
  - Multiple sclerosis [Unknown]
  - Blindness [Unknown]
  - Vision blurred [Unknown]
  - Hypoaesthesia [Unknown]
  - Treatment failure [Unknown]

NARRATIVE: CASE EVENT DATE: 20250703
